FAERS Safety Report 23461633 (Version 1)
Quarter: 2024Q1

REPORT INFORMATION
  Report Type: Spontaneous
  Country: US (occurrence: US)
  Receive Date: 20240131
  Receipt Date: 20240131
  Transmission Date: 20240410
  Serious: No
  Sender: FDA-Public Use
  Company Number: US-Rhythm Pharmaceuticals, Inc.-2023RHM000038

PATIENT
  Age: 17 Year
  Sex: Male

DRUGS (2)
  1. IMCIVREE [Suspect]
     Active Substance: SETMELANOTIDE
     Indication: Laurence-Moon-Bardet-Biedl syndrome
     Dosage: 2 MG (0.2 ML)
     Route: 058
     Dates: start: 20230121
  2. IMCIVREE [Suspect]
     Active Substance: SETMELANOTIDE
     Route: 058

REACTIONS (5)
  - Nausea [Recovered/Resolved]
  - Headache [Recovered/Resolved]
  - Skin discolouration [Not Recovered/Not Resolved]
  - Melanocytic naevus [Not Recovered/Not Resolved]
  - Skin hyperpigmentation [Unknown]

NARRATIVE: CASE EVENT DATE: 20230124
